FAERS Safety Report 5466612-1 (Version None)
Quarter: 2007Q3

REPORT INFORMATION
  Report Type: 
  Country: None (occurrence: None)
  Receive Date: 20070925
  Receipt Date: 20070918
  Transmission Date: 20080115
  Serious: Yes (Other)
  Sender: FDA-Public Use
  Company Number: PHBS2006JP18205

PATIENT
  Age: 64 Year
  Sex: Female

DRUGS (2)
  1. ZOMETA [Suspect]
     Indication: METASTASES TO BONE
     Dosage: 4 MG, UNK
     Route: 042
     Dates: start: 20060801, end: 20061001
  2. TAXOTERE [Concomitant]
     Dosage: 100 MG/D
     Route: 042

REACTIONS (2)
  - JAW FRACTURE [None]
  - SURGERY [None]
